FAERS Safety Report 8428769-X (Version None)
Quarter: 2012Q2

REPORT INFORMATION
  Report Type: 
  Country: None (occurrence: None)
  Receive Date: 20120612
  Receipt Date: 20120604
  Transmission Date: 20120825
  Serious: Yes (Hospitalization)
  Sender: FDA-Public Use
  Company Number: US-BAYER-2012-018760

PATIENT
  Age: 27 Year
  Sex: Female
  Weight: 56.689 kg

DRUGS (9)
  1. LITHIUM CARBONATE [Concomitant]
     Dosage: 300 MG/ 2 CS BID
     Route: 048
  2. ABILIFY [Concomitant]
     Dosage: 5 MG, 1 TAB HS
     Route: 048
  3. CHLORDIAZEPOXIDE [Concomitant]
     Indication: WITHDRAWAL SYNDROME
     Dosage: 25 MG, Q6H
     Route: 048
  4. VALTREX [Concomitant]
     Dosage: 500 MG, BID
     Route: 048
  5. SULFAMETHOXAZOLE AND TRIMETHOPRIM [Concomitant]
     Dosage: 800/160 TABS/ BID
     Route: 048
  6. TOPAMAX [Concomitant]
     Dosage: 25 MG TAB/ QHS
     Route: 048
  7. PHENAZOPYRIDINE HCL TAB [Concomitant]
     Dosage: 200 MG, TID
     Route: 048
  8. LAMICTAL [Concomitant]
     Dosage: 200 MG/ 2 TS DAILY
     Route: 048
  9. YAZ [Suspect]
     Indication: CONTRACEPTION
     Dosage: UNK
     Dates: start: 20071212, end: 20090601

REACTIONS (6)
  - INJURY [None]
  - ABASIA [None]
  - CHOLECYSTITIS ACUTE [None]
  - PAIN [None]
  - CHOLECYSTITIS [None]
  - ABDOMINAL PAIN LOWER [None]
